FAERS Safety Report 8260449-6 (Version None)
Quarter: 2012Q2

REPORT INFORMATION
  Report Type: 
  Country: None (occurrence: None)
  Receive Date: 20120404
  Receipt Date: 20120329
  Transmission Date: 20120825
  Serious: Yes (Hospitalization)
  Sender: FDA-Public Use
  Company Number: US-GILEAD-2012-0050867

PATIENT
  Sex: Female

DRUGS (16)
  1. ASPIRIN [Concomitant]
     Indication: ISCHAEMIC HEART DISEASE PROPHYLAXIS
     Dosage: UNK
     Dates: start: 20110404
  2. B-COMPLEX                          /00003501/ [Concomitant]
     Indication: MEDICAL DIET
     Dosage: UNK
     Dates: start: 20060601
  3. VITAMIN E                          /00110501/ [Concomitant]
     Indication: MEDICAL DIET
     Dosage: UNK
     Dates: start: 20060601
  4. FLUTICASONE FUROATE [Concomitant]
     Indication: SEASONAL ALLERGY
     Dosage: UNK
     Dates: start: 20060601
  5. SPIRIVA [Concomitant]
     Indication: ASTHMA
     Dosage: UNK
     Dates: start: 20080202
  6. VITAMIN D [Concomitant]
     Indication: MEDICAL DIET
     Dosage: UNK
     Dates: start: 20080602
  7. PLACEBO [Suspect]
     Indication: BRONCHIECTASIS
     Dosage: 75 MG, TID
     Route: 055
     Dates: end: 20120104
  8. AZTREONAM [Suspect]
     Indication: BRONCHIECTASIS
     Dosage: 75 MG, TID
     Route: 055
     Dates: start: 20120131, end: 20120211
  9. OMEPRAZOLE [Concomitant]
     Indication: GASTROOESOPHAGEAL REFLUX DISEASE
     Dosage: UNK
     Dates: start: 20110404
  10. MULTIVITAMINS, COMBINATIONS [Concomitant]
     Indication: MEDICAL DIET
     Dosage: UNK
     Dates: start: 20080602
  11. OMEGA 3-6-9 [Concomitant]
     Indication: MEDICAL DIET
     Dosage: UNK
     Dates: start: 20080602
  12. FOSAMAX [Concomitant]
     Indication: OSTEOPOROSIS
     Dosage: UNK
     Dates: start: 20101206
  13. AMLODIPINE [Concomitant]
     Indication: HYPERTENSION
     Dosage: UNK
     Dates: start: 20080601
  14. TAMOXIFEN CITRATE [Concomitant]
     Indication: PROPHYLAXIS
     Dosage: UNK
     Dates: start: 20110801
  15. SYMBICORT [Concomitant]
     Indication: ASTHMA
     Dosage: UNK
     Dates: start: 20080602
  16. CALCIUM CARBONATE [Concomitant]
     Indication: MEDICAL DIET
     Dosage: UNK
     Dates: start: 20080602

REACTIONS (1)
  - BRONCHIECTASIS [None]
